FAERS Safety Report 7678083-5 (Version None)
Quarter: 2011Q3

REPORT INFORMATION
  Report Type: 
  Country: None (occurrence: None)
  Receive Date: 20110811
  Receipt Date: 20110810
  Transmission Date: 20111222
  Serious: Yes (Hospitalization)
  Sender: FDA-Public Use
  Company Number: US-BRISTOL-MYERS SQUIBB COMPANY-15962178

PATIENT
  Age: 25 Year
  Sex: Male

DRUGS (1)
  1. ABILIFY [Suspect]
     Dosage: DOSE INCREASED TO 4MG AND STOPPED; RESTARTED AGAIN WITH 20MG
     Dates: start: 20100801

REACTIONS (4)
  - HALLUCINATION [None]
  - INSOMNIA [None]
  - NAUSEA [None]
  - ASTHENIA [None]
